FAERS Safety Report 9537895 (Version 2)
Quarter: 2013Q4

REPORT INFORMATION
  Report Type: Spontaneous
  Country: JP (occurrence: JP)
  Receive Date: 20130919
  Receipt Date: 20131224
  Transmission Date: 20140711
  Serious: Yes (Hospitalization)
  Sender: FDA-Public Use
  Company Number: JP-ROCHE-1277809

PATIENT
  Age: 45 Year
  Sex: Male

DRUGS (1)
  1. ACTEMRA [Suspect]
     Indication: CASTLEMAN^S DISEASE
     Dosage: DOSAGE IS UNCERTAIN.
     Route: 041
     Dates: start: 2008

REACTIONS (4)
  - Pancreatitis [Unknown]
  - Cholecystitis [Recovered/Resolved]
  - Biliary colic [Unknown]
  - Urticaria [Unknown]
